FAERS Safety Report 6354531-8 (Version None)
Quarter: 2009Q3

REPORT INFORMATION
  Report Type: 
  Country: None (occurrence: None)
  Receive Date: 20090914
  Receipt Date: 20090903
  Transmission Date: 20100115
  Serious: Yes (Hospitalization)
  Sender: FDA-Public Use
  Company Number: BR-AVENTIS-200920100GDDC

PATIENT
  Age: 64 Year
  Sex: Female
  Weight: 61.3 kg

DRUGS (4)
  1. TAXOTERE [Suspect]
     Route: 042
     Dates: start: 20090803, end: 20090803
  2. DEXAMETHASONE [Concomitant]
     Indication: PREMEDICATION
     Route: 042
     Dates: start: 20090803, end: 20090803
  3. ONDANSETRON [Concomitant]
     Indication: PROPHYLAXIS
     Route: 042
     Dates: start: 20090803, end: 20090803
  4. PROMETHAZINE [Concomitant]
     Indication: PROPHYLAXIS

REACTIONS (4)
  - BLADDER SPHINCTER ATONY [None]
  - CHEST DISCOMFORT [None]
  - NAUSEA [None]
  - SYNCOPE [None]
